FAERS Safety Report 24045773 (Version 3)
Quarter: 2024Q3

REPORT INFORMATION
  Report Type: Spontaneous
  Country: DE (occurrence: DE)
  Receive Date: 20240703
  Receipt Date: 20240710
  Transmission Date: 20241016
  Serious: Yes (Other)
  Sender: NOVARTIS
  Company Number: DE-002147023-NVSC2024DE134315

PATIENT
  Sex: Female

DRUGS (3)
  1. COSENTYX [Suspect]
     Active Substance: SECUKINUMAB
     Indication: Psoriatic arthropathy
     Dosage: 300 MG, QMO (2X150 MG) (INJECTION)
     Route: 065
  2. COSENTYX [Suspect]
     Active Substance: SECUKINUMAB
     Dosage: 300 MG, QMO (2X150 MG) (INJECTION)
     Route: 065
  3. COSENTYX [Suspect]
     Active Substance: SECUKINUMAB
     Dosage: 300 MG, QMO (2X150 MG) (INJECTION)
     Route: 065

REACTIONS (4)
  - Breast cancer [Unknown]
  - Nodal osteoarthritis [Unknown]
  - Pulpitis dental [Recovered/Resolved]
  - Tooth injury [Unknown]

NARRATIVE: CASE EVENT DATE: 20240626
